FAERS Safety Report 6207990-5 (Version None)
Quarter: 2009Q2

REPORT INFORMATION
  Report Type: 
  Country: None (occurrence: None)
  Receive Date: 20090529
  Receipt Date: 20090302
  Transmission Date: 20091009
  Serious: No
  Sender: FDA-Public Use
  Company Number: A0770026A

PATIENT
  Sex: Male

DRUGS (4)
  1. VENTOLIN [Suspect]
     Indication: ASTHMA
     Route: 055
  2. STEROID [Concomitant]
  3. THEO-DUR [Concomitant]
     Dosage: 400MG PER DAY
  4. ALBUTEROL [Concomitant]

REACTIONS (4)
  - EMOTIONAL DISORDER [None]
  - PRODUCT QUALITY ISSUE [None]
  - RETCHING [None]
  - VOMITING [None]
